FAERS Safety Report 6107537-8 (Version None)
Quarter: 2009Q1

REPORT INFORMATION
  Report Type: 
  Country: None (occurrence: None)
  Receive Date: 20090309
  Receipt Date: 20090226
  Transmission Date: 20090719
  Serious: Yes (Hospitalization, Other)
  Sender: FDA-Public Use
  Company Number: PHHY2008BE10280

PATIENT
  Sex: Male

DRUGS (1)
  1. ZOLEDRONIC ACID [Suspect]
     Indication: METASTASES TO BONE
     Dosage: 3.4 MG
     Route: 042
     Dates: start: 20040907, end: 20071214

REACTIONS (8)
  - ABDOMINAL PAIN [None]
  - BONE LESION [None]
  - CATARACT [None]
  - CATARACT OPERATION [None]
  - GASTRIC ULCER [None]
  - GASTRIC ULCER PERFORATION [None]
  - OSTEONECROSIS [None]
  - URINARY TRACT INFECTION [None]
